FAERS Safety Report 9668357 (Version 2)
Quarter: 2013Q4

REPORT INFORMATION
  Report Type: Report from Study
  Country: JP (occurrence: JP)
  Receive Date: 20131104
  Receipt Date: 20131217
  Transmission Date: 20140711
  Serious: Yes (Hospitalization, Other)
  Sender: FDA-Public Use
  Company Number: JP-TAKEDA-2013TJP002365

PATIENT
  Age: 64 Year
  Sex: Male
  Weight: 72 kg

DRUGS (9)
  1. LANSOPRAZOLE [Suspect]
     Indication: PROPHYLAXIS AGAINST GASTROINTESTINAL ULCER
     Dosage: 15 MG, QD
     Route: 048
     Dates: start: 20120918
  2. BLOPRESS [Concomitant]
     Dosage: 2 MG, 1 DAYS
     Route: 048
     Dates: start: 20120919
  3. BAYASPIRIN [Concomitant]
     Indication: THROMBOSIS PROPHYLAXIS
     Dosage: 100 MG,1 DAYS
     Route: 048
     Dates: start: 20120917
  4. PLAVIX [Concomitant]
     Indication: MYOCARDIAL INFARCTION
     Dosage: 75 MG, 1 DAYS
     Route: 048
     Dates: start: 20120917
  5. SIGMART [Concomitant]
     Indication: MYOCARDIAL INFARCTION
     Dosage: 15 MG, 1 DAYS
     Route: 048
     Dates: start: 20120919
  6. MAGNESIUM OXIDE [Concomitant]
     Dosage: 6 G, 1 DAYS
     Route: 048
     Dates: start: 20120917
  7. RIZE                               /00624801/ [Concomitant]
     Dosage: 15 MG, 1 DAYS
     Route: 048
     Dates: start: 20120917
  8. LASIX                              /00032601/ [Concomitant]
     Dosage: 20 MG, 1 DAYS
     Route: 048
     Dates: start: 20120926
  9. SUNRYTHM [Concomitant]
     Indication: MYOCARDIAL INFARCTION
     Dosage: 75 MG,1 DAYS
     Route: 048
     Dates: start: 20120926

REACTIONS (2)
  - Cardiac failure congestive [Recovering/Resolving]
  - Angina unstable [Recovering/Resolving]
